FAERS Safety Report 5885735-6 (Version None)
Quarter: 2008Q3

REPORT INFORMATION
  Report Type: 
  Country: None (occurrence: None)
  Receive Date: 20080916
  Receipt Date: 20080905
  Transmission Date: 20090109
  Serious: Yes (Hospitalization, Disabling)
  Sender: FDA-Public Use
  Company Number: US-ELI_LILLY_AND_COMPANY-US200808003757

PATIENT
  Sex: Female

DRUGS (14)
  1. HUMALOG [Suspect]
     Dosage: UNK, AS NEEDED
  2. LANTUS [Concomitant]
  3. ASPIRIN [Concomitant]
     Dosage: 325 MG, DAILY (1/D)
  4. HYDROCHLOROTHIAZIDE [Concomitant]
     Dosage: 25 MG, DAILY (1/D)
  5. METOPROLOL [Concomitant]
     Dosage: 25 MG, 2/D
  6. MINOCYCLINE HCL [Concomitant]
     Dosage: 100 MG, 2/D
  7. PROZAC [Concomitant]
     Dosage: 20 MG, DAILY (1/D)
  8. FOSAMAX [Concomitant]
     Dosage: 70 MG, WEEKLY (1/W)
  9. CLONAZEPAM [Concomitant]
     Dosage: 2 MG, DAILY (1/D)
  10. KLONOPIN [Concomitant]
     Dosage: 2 MG, DAILY (1/D)
  11. ISOSORBIDE [Concomitant]
     Dosage: 60 MG, DAILY (1/D)
  12. LISINOPRIL [Concomitant]
     Dosage: 2.5 MG, DAILY (1/D)
  13. LIPITOR [Concomitant]
     Dosage: 80 MG, DAILY (1/D)
  14. PLAVIX [Concomitant]
     Dosage: 75 MG, DAILY (1/D)

REACTIONS (8)
  - CARDIAC DISORDER [None]
  - HYPERTENSION [None]
  - IRRITABLE BOWEL SYNDROME [None]
  - MYOCARDIAL INFARCTION [None]
  - NEPHROPATHY [None]
  - NEUROPATHY PERIPHERAL [None]
  - OSTEOPOROSIS [None]
  - RETINOPATHY [None]
